FAERS Safety Report 25021896 (Version 2)
Quarter: 2025Q1

REPORT INFORMATION
  Report Type: Spontaneous
  Country: IT (occurrence: IT)
  Receive Date: 20250228
  Receipt Date: 20250310
  Transmission Date: 20250409
  Serious: Yes (Life-Threatening, Hospitalization, Other)
  Sender: CHEPLAPHARM
  Company Number: None

PATIENT
  Age: 36 Year
  Sex: Male

DRUGS (12)
  1. CLONAZEPAM [Suspect]
     Active Substance: CLONAZEPAM
     Indication: Intentional self-injury
     Route: 048
     Dates: start: 20240812, end: 20240812
  2. QUETIAPINE [Suspect]
     Active Substance: QUETIAPINE
     Indication: Intentional self-injury
     Route: 048
     Dates: start: 20240812, end: 20240812
  3. QUETIAPINE [Suspect]
     Active Substance: QUETIAPINE
     Indication: Intentional self-injury
     Dosage: 24 TABLETS?DAILY DOSE: 2400 MILLIGRAM
     Route: 048
     Dates: start: 20240912, end: 20240912
  4. VALPROATE SODIUM [Suspect]
     Active Substance: VALPROATE SODIUM
     Indication: Intentional self-injury
     Dosage: DEPAKIN 500MG 3 TABLETS
     Route: 048
     Dates: start: 20240812, end: 20240812
  5. VALPROATE SODIUM [Suspect]
     Active Substance: VALPROATE SODIUM
     Indication: Intentional self-injury
     Dosage: 500 MG 5 CP?DAILY DOSE: 2500 MILLIGRAM
     Route: 048
     Dates: start: 20240912, end: 20240912
  6. ABILIFY [Suspect]
     Active Substance: ARIPIPRAZOLE
     Indication: Intentional self-injury
     Dosage: ABILIFY 10 MG 4 TABLETS?DAILY DOSE: 40 MILLIGRAM
     Route: 048
     Dates: start: 20240812, end: 20240812
  7. LAMICTAL [Suspect]
     Active Substance: LAMOTRIGINE
     Indication: Intentional self-injury
     Dosage: LAMIKTAL 50 MG 4 TABLETS?DAILY DOSE: 200 MILLIGRAM
     Route: 048
     Dates: start: 20240812, end: 20240812
  8. VENLAFAXINE HYDROCHLORIDE [Suspect]
     Active Substance: VENLAFAXINE HYDROCHLORIDE
     Indication: Intentional self-injury
     Dosage: ZARILIS 75MG 4 TABLETS?DAILY DOSE: 300 MILLIGRAM
     Route: 048
     Dates: start: 20240812, end: 20240812
  9. PERINDOPRIL [Suspect]
     Active Substance: PERINDOPRIL
     Indication: Intentional self-injury
     Dosage: PERINDOPRIL 4MG 4 TABLETS?DAILY DOSE: 16 MILLIGRAM
     Route: 048
     Dates: start: 20240812, end: 20240812
  10. FUROSEMIDE [Suspect]
     Active Substance: FUROSEMIDE
     Indication: Intentional self-injury
     Dosage: LASIX 25MG 4 TABLETS?DAILY DOSE: 100 MILLIGRAM
     Route: 048
     Dates: start: 20240812, end: 20240812
  11. LITHIUM CARBONATE [Suspect]
     Active Substance: LITHIUM CARBONATE
     Dosage: 300 MG 10 CP ?DAILY DOSE: 3000 MILLIGRAM
     Route: 048
     Dates: start: 20240912, end: 20240912
  12. PAROXETINE [Suspect]
     Active Substance: PAROXETINE
     Dosage: 20 MG 5 CP?DAILY DOSE: 100 MILLIGRAM
     Route: 048
     Dates: start: 20240912, end: 20240912

REACTIONS (6)
  - Drug abuse [Recovered/Resolved]
  - Drug abuse [Recovered/Resolved]
  - Intentional self-injury [Recovered/Resolved]
  - Intentional self-injury [Recovered/Resolved]
  - Sopor [Recovered/Resolved]
  - Sopor [Recovered/Resolved]

NARRATIVE: CASE EVENT DATE: 20240812
